FAERS Safety Report 7421747-9 (Version None)
Quarter: 2011Q2

REPORT INFORMATION
  Report Type: 
  Country: None (occurrence: None)
  Receive Date: 20110418
  Receipt Date: 20110401
  Transmission Date: 20111010
  Serious: Yes (Other)
  Sender: FDA-Public Use
  Company Number: IN-KINGPHARMUSA00001-K201100456

PATIENT
  Age: 63 Year
  Sex: Male
  Weight: 73 kg

DRUGS (2)
  1. ALTACE [Suspect]
     Indication: HYPERTENSION
     Dosage: 5 MG, UNK
     Route: 048
     Dates: start: 20100701, end: 20101201
  2. SIMVASTATIN [Concomitant]
     Dosage: 1 DF, QD
     Route: 048

REACTIONS (2)
  - FROSTBITE [None]
  - RAYNAUD'S PHENOMENON [None]
